FAERS Safety Report 8208373-9 (Version None)
Quarter: 2012Q1

REPORT INFORMATION
  Report Type: 
  Country: None (occurrence: None)
  Receive Date: 20120314
  Receipt Date: 20120307
  Transmission Date: 20120608
  Serious: Yes (Other)
  Sender: FDA-Public Use
  Company Number: JP-VERTEX PHARMACEUTICALS INC.-AE-2012-002356

PATIENT
  Age: 58 Year
  Sex: Female

DRUGS (11)
  1. PEGINTERFERON [Concomitant]
     Indication: HEPATITIS C
     Route: 058
     Dates: start: 20120202, end: 20120214
  2. REBETOL [Concomitant]
     Indication: HEPATITIS C
     Route: 048
     Dates: start: 20120207, end: 20120209
  3. ETHYL ICOSAPENTATE [Concomitant]
     Route: 048
  4. SODIUM FERROUS CITRATE [Concomitant]
  5. TELAVIC (TELAPREVIR) [Suspect]
     Indication: HEPATITIS C
     Route: 048
     Dates: start: 20120207, end: 20120209
  6. TELAVIC (TELAPREVIR) [Suspect]
     Route: 048
  7. REBETOL [Concomitant]
     Dates: start: 20120223, end: 20120224
  8. LANSOPRAZOLE [Concomitant]
  9. PEGINTERFERON [Concomitant]
     Route: 058
     Dates: start: 20120223, end: 20120301
  10. SPIRONOLACTONE [Concomitant]
     Route: 048
  11. LASIX [Concomitant]

REACTIONS (1)
  - RENAL FAILURE ACUTE [None]
